FAERS Safety Report 11178259 (Version 1)
Quarter: 2015Q2

REPORT INFORMATION
  Report Type: Spontaneous
  Country: US (occurrence: None)
  Receive Date: 20150515
  Receipt Date: 20150515
  Transmission Date: 20150821
  Serious: Yes (Other)
  Sender: FDA-Public Use
  Company Number: 2014003072

PATIENT
  Age: 53 Year
  Sex: Female
  Weight: 183.7 kg

DRUGS (11)
  1. LIALDA (MESALAZINE) [Concomitant]
  2. EPSOM SALT (MAGNESIUM SULFATE) [Concomitant]
  3. IRON [Concomitant]
     Active Substance: IRON
  4. CIMZIA [Suspect]
     Active Substance: CERTOLIZUMAB PEGOL
     Indication: CROHN^S DISEASE
     Dosage: EV 4 WEEKS
     Dates: start: 20090126, end: 201406
  5. BUDESONIDE. [Concomitant]
     Active Substance: BUDESONIDE
  6. ADVAIR DISKUS [Concomitant]
     Active Substance: FLUTICASONE PROPIONATE\SALMETEROL XINAFOATE
  7. VICODIN [Concomitant]
     Active Substance: ACETAMINOPHEN\HYDROCODONE BITARTRATE
  8. TRAMADOL (TRAMADOL HYDROCHLORIDE) [Concomitant]
     Active Substance: TRAMADOL HYDROCHLORIDE
  9. MUCINEX (GUAIFENESIN) [Concomitant]
  10. CALCIUM (CALCIUM GLUCONATE) [Concomitant]
  11. LASIX [Concomitant]
     Active Substance: FUROSEMIDE

REACTIONS (3)
  - Oral pain [None]
  - Pneumonia [None]
  - Headache [None]

NARRATIVE: CASE EVENT DATE: 201402
